FAERS Safety Report 7733804-8 (Version None)
Quarter: 2011Q3

REPORT INFORMATION
  Report Type: 
  Country: None (occurrence: None)
  Receive Date: 20110907
  Receipt Date: 20110902
  Transmission Date: 20111222
  Serious: Yes (Death, Other)
  Sender: FDA-Public Use
  Company Number: PHHY2011JP78740

PATIENT
  Age: 95 Year
  Sex: Male

DRUGS (5)
  1. DICLOFENAC SODIUM [Suspect]
     Dosage: UNK UKN, UNK
     Route: 048
  2. VALSARTAN [Concomitant]
     Dosage: UNK UKN, UNK
  3. SENNOSIDE [Concomitant]
     Dosage: UNK UKN, UNK
  4. OXYCODONE HCL [Concomitant]
     Dosage: 5 MG, UNK
  5. MAGNESIUM OXIDE [Concomitant]
     Dosage: UNK UKN, UNK

REACTIONS (16)
  - COLON CANCER [None]
  - ADRENAL INSUFFICIENCY [None]
  - BLOOD ALKALINE PHOSPHATASE INCREASED [None]
  - PROTHROMBIN LEVEL DECREASED [None]
  - ACTIVATED PARTIAL THROMBOPLASTIN TIME PROLONGED [None]
  - BLOOD FIBRINOGEN INCREASED [None]
  - C-REACTIVE PROTEIN INCREASED [None]
  - WHITE BLOOD CELL COUNT DECREASED [None]
  - NEUTROPHIL COUNT DECREASED [None]
  - HAEMATOCRIT DECREASED [None]
  - BLOOD CALCIUM DECREASED [None]
  - GRANULOCYTE COUNT INCREASED [None]
  - LYMPHOCYTE COUNT DECREASED [None]
  - CHRONIC MYELOMONOCYTIC LEUKAEMIA [None]
  - GASTRIC MUCOSAL LESION [None]
  - HAEMOGLOBIN DECREASED [None]
